FAERS Safety Report 23747779 (Version 3)
Quarter: 2024Q2

REPORT INFORMATION
  Report Type: Spontaneous
  Country: US (occurrence: US)
  Receive Date: 20240416
  Receipt Date: 20240530
  Transmission Date: 20240715
  Serious: Yes (Life-Threatening, Hospitalization)
  Sender: FDA-Public Use
  Company Number: US-AMERICAN REGENT INC-2024001285

PATIENT
  Age: 54 Year
  Sex: Male
  Weight: 86.5 kg

DRUGS (4)
  1. VENOFER [Suspect]
     Active Substance: IRON SUCROSE
     Indication: Nephrogenic anaemia
     Dosage: 50 MG
     Route: 042
     Dates: start: 20240315, end: 20240315
  2. VENOFER [Suspect]
     Active Substance: IRON SUCROSE
     Dosage: 50 MG
     Route: 042
     Dates: start: 20240318, end: 20240318
  3. VENOFER [Suspect]
     Active Substance: IRON SUCROSE
     Dosage: 50 MG; LATER EXPOSURE WITH THE SAME IRON MEDICATION
     Route: 042
     Dates: start: 20240325, end: 20240325
  4. MIRCERA [Suspect]
     Active Substance: METHOXY POLYETHYLENE GLYCOL-EPOETIN BETA
     Indication: Nephrogenic anaemia
     Dosage: 250 MICROGRAM, 1 IN 2 WK
     Route: 010
     Dates: start: 20240209, end: 20240325

REACTIONS (1)
  - Drug hypersensitivity [Recovered/Resolved]

NARRATIVE: CASE EVENT DATE: 20240325
